FAERS Safety Report 7883574-8 (Version None)
Quarter: 2011Q4

REPORT INFORMATION
  Report Type: 
  Country: None (occurrence: None)
  Receive Date: 20111102
  Receipt Date: 20100616
  Transmission Date: 20120403
  Serious: No
  Sender: FDA-Public Use
  Company Number: US-BAYER-201025894NA

PATIENT
  Age: 24 Year
  Sex: Female

DRUGS (2)
  1. PREDNISONE [Concomitant]
  2. AVELOX [Suspect]
     Indication: EYE INFECTION
     Dosage: 400 MG, QD
     Route: 048
     Dates: start: 20100610, end: 20100611

REACTIONS (1)
  - HEADACHE [None]
